FAERS Safety Report 7614157-2 (Version None)
Quarter: 2011Q3

REPORT INFORMATION
  Report Type: 
  Country: None (occurrence: None)
  Receive Date: 20110708
  Receipt Date: 20110630
  Transmission Date: 20111222
  Serious: Yes (Death, Hospitalization)
  Sender: FDA-Public Use
  Company Number: JHP201100253

PATIENT
  Sex: Female

DRUGS (2)
  1. BREVITAL SODIUM INJ [Suspect]
     Indication: ANAESTHESIA PROCEDURE
     Dosage: INTRAVENOUS
     Route: 042
     Dates: start: 20110101, end: 20110101
  2. VALIUM [Concomitant]

REACTIONS (1)
  - MUSCLE RIGIDITY [None]
